FAERS Safety Report 19416769 (Version 5)
Quarter: 2021Q4

REPORT INFORMATION
  Report Type: Report from Study
  Country: US (occurrence: US)
  Receive Date: 20210614
  Receipt Date: 20211005
  Transmission Date: 20220303
  Serious: No
  Sender: FDA-Public Use
  Company Number: NVSC2021US128885

PATIENT
  Sex: Female

DRUGS (2)
  1. KESIMPTA [Suspect]
     Active Substance: OFATUMUMAB
     Indication: Multiple sclerosis
     Dosage: (BENEATH THE SKIN, USUALLY VIA INJECTION)
     Route: 058
     Dates: start: 20210506
  2. KESIMPTA [Suspect]
     Active Substance: OFATUMUMAB
     Indication: Multiple sclerosis

REACTIONS (18)
  - Immune system disorder [Unknown]
  - Feeling abnormal [Unknown]
  - Injection site extravasation [Unknown]
  - White blood cell count increased [Unknown]
  - Furuncle [Unknown]
  - Oral herpes [Unknown]
  - Lymphadenopathy [Unknown]
  - Product complaint [Unknown]
  - Dizziness [Unknown]
  - Frustration tolerance decreased [Not Recovered/Not Resolved]
  - Vertigo [Unknown]
  - Vitamin D deficiency [Unknown]
  - Vitamin B complex deficiency [Unknown]
  - Depression [Unknown]
  - Pain [Unknown]
  - Injection site erythema [Unknown]
  - Injection site pruritus [Unknown]
  - Injection site swelling [Unknown]
